FAERS Safety Report 8492598-1 (Version None)
Quarter: 2012Q3

REPORT INFORMATION
  Report Type: 
  Country: None (occurrence: None)
  Receive Date: 20120706
  Receipt Date: 20120625
  Transmission Date: 20120928
  Serious: Yes (Other)
  Sender: FDA-Public Use
  Company Number: FR-ELI_LILLY_AND_COMPANY-FR201206008608

PATIENT
  Age: 72 Year
  Sex: Female

DRUGS (3)
  1. LORAZEPAM [Concomitant]
  2. OXAZEPAM [Concomitant]
  3. CYMBALTA [Suspect]
     Dosage: 60 MG

REACTIONS (1)
  - HEPATITIS [None]
